FAERS Safety Report 7485056-4 (Version None)
Quarter: 2011Q2

REPORT INFORMATION
  Report Type: 
  Country: None (occurrence: None)
  Receive Date: 20110517
  Receipt Date: 20110505
  Transmission Date: 20111010
  Serious: Yes (Death, Hospitalization)
  Sender: FDA-Public Use
  Company Number: BR-SANOFI-AVENTIS-2010SA060806

PATIENT
  Age: 70 Year
  Sex: Male

DRUGS (3)
  1. DEXPANTHENOL [Suspect]
     Route: 061
     Dates: start: 20100811, end: 20100826
  2. OXALIPLATIN [Suspect]
  3. CAPECITABINE [Suspect]
     Indication: COLORECTAL CANCER

REACTIONS (3)
  - RENAL FAILURE ACUTE [None]
  - SEPSIS [None]
  - GASTROINTESTINAL TOXICITY [None]
